FAERS Safety Report 23668666 (Version 1)
Quarter: 2024Q1

REPORT INFORMATION
  Report Type: Spontaneous
  Country: US (occurrence: None)
  Receive Date: 20240323
  Receipt Date: 20240323
  Transmission Date: 20240410
  Serious: No
  Sender: FDA-Public Use
  Company Number: None

PATIENT
  Age: 5 Year
  Sex: Male
  Weight: 20.25 kg

DRUGS (1)
  1. MIRALAX [Suspect]
     Active Substance: POLYETHYLENE GLYCOL 3350
     Indication: Constipation
     Dates: start: 20240104, end: 20240205

REACTIONS (6)
  - Abnormal behaviour [None]
  - Anger [None]
  - Aggression [None]
  - Hallucination [None]
  - Crying [None]
  - Sleep disorder [None]
